FAERS Safety Report 9105709 (Version 1)
Quarter: 2013Q1

REPORT INFORMATION
  Report Type: Spontaneous
  Country: US (occurrence: US)
  Receive Date: 20130220
  Receipt Date: 20130220
  Transmission Date: 20140127
  Serious: No
  Sender: FDA-Public Use
  Company Number: US-PFIZER INC-2013060914

PATIENT
  Age: 69 Year
  Sex: Female
  Weight: 61.22 kg

DRUGS (5)
  1. LEVOXYL [Suspect]
     Indication: HYPOTHYROIDISM
     Dosage: UNK, 1X/DAY
     Route: 048
     Dates: start: 2012, end: 2012
  2. LEVOXYL [Suspect]
     Dosage: 100 UG, 1X/DAY
     Route: 048
     Dates: start: 2012, end: 201302
  3. LEVOXYL [Suspect]
     Dosage: 112 UG, 1X/DAY
     Route: 048
     Dates: start: 201302
  4. LEVOXYL [Suspect]
     Dosage: 106 UG, 1X/DAY
     Route: 048
  5. CYTOMEL [Suspect]
     Indication: TRI-IODOTHYRONINE DECREASED
     Dosage: UNK
     Dates: start: 201302, end: 201302

REACTIONS (8)
  - Drug ineffective [Unknown]
  - Malaise [Unknown]
  - Headache [Unknown]
  - Nausea [Unknown]
  - Drug intolerance [Unknown]
  - Feeling abnormal [Unknown]
  - Feeling jittery [Unknown]
  - Palpitations [Unknown]
